FAERS Safety Report 6645425-9 (Version None)
Quarter: 2010Q1

REPORT INFORMATION
  Report Type: 
  Country: None (occurrence: None)
  Receive Date: 20100322
  Receipt Date: 20100311
  Transmission Date: 20100710
  Serious: Yes (Other)
  Sender: FDA-Public Use
  Company Number: FI-BRISTOL-MYERS SQUIBB COMPANY-15012909

PATIENT
  Age: 16 Year
  Sex: Female

DRUGS (3)
  1. ABILIFY [Suspect]
     Indication: PSYCHOTIC DISORDER
  2. QUETIAPINE [Suspect]
     Dosage: DOSE DECREASED TO 12.5MG
  3. SERONIL [Concomitant]

REACTIONS (1)
  - FACIAL PARESIS [None]
